FAERS Safety Report 4881942-X (Version None)
Quarter: 2006Q1

REPORT INFORMATION
  Report Type: 
  Country: None (occurrence: None)
  Receive Date: 20060112
  Receipt Date: 20060105
  Transmission Date: 20060701
  Serious: Yes (Hospitalization, Other)
  Sender: FDA-Public Use
  Company Number: HQWYE874523MAY05

PATIENT
  Age: 57 Year
  Sex: Female

DRUGS (4)
  1. EFFEXOR [Suspect]
     Indication: MAJOR DEPRESSION
     Dosage: SEE IMAGE, ORAL
     Route: 048
     Dates: start: 20050423, end: 20050427
  2. EFFEXOR [Suspect]
     Indication: MAJOR DEPRESSION
     Dosage: SEE IMAGE, ORAL
     Route: 048
     Dates: start: 20050428, end: 20050429
  3. RISPERDAL [Suspect]
     Indication: SCHIZOAFFECTIVE DISORDER
     Dosage: 75 MG 1X PER 1 DAY,
  4. AMITRIPTYLINE HCL [Suspect]
     Indication: MAJOR DEPRESSION
     Dosage: 50 MG 1X PER 1 DAY

REACTIONS (11)
  - BALANCE DISORDER [None]
  - BLOOD PRESSURE INCREASED [None]
  - DIZZINESS [None]
  - DRUG INTERACTION [None]
  - HEART RATE INCREASED [None]
  - HYPERHIDROSIS [None]
  - INSOMNIA [None]
  - RESTLESSNESS [None]
  - SEROTONIN SYNDROME [None]
  - TREMOR [None]
  - VERTIGO [None]
